FAERS Safety Report 5479957-6 (Version None)
Quarter: 2007Q4

REPORT INFORMATION
  Report Type: 
  Country: None (occurrence: None)
  Receive Date: 20071008
  Receipt Date: 20071003
  Transmission Date: 20080405
  Serious: Yes (Hospitalization)
  Sender: FDA-Public Use
  Company Number: FR-GENENTECH-248853

PATIENT
  Sex: Female

DRUGS (5)
  1. RITUXIMAB [Suspect]
     Indication: MANTLE CELL LYMPHOMA
     Dates: start: 20060810
  2. CYCLOPHOSPHAMIDE [Suspect]
     Indication: MANTLE CELL LYMPHOMA
     Dates: start: 20060810
  3. DOXORUBICIN HCL [Suspect]
     Indication: MANTLE CELL LYMPHOMA
     Dosage: UNK, UNK
     Dates: start: 20060810
  4. VINCRISTINE [Suspect]
     Indication: MANTLE CELL LYMPHOMA
     Dates: start: 20060810
  5. PREDNISONE [Suspect]
     Indication: MANTLE CELL LYMPHOMA
     Dates: start: 20060810

REACTIONS (1)
  - CARDIOMYOPATHY [None]
